FAERS Safety Report 6587967-0 (Version None)
Quarter: 2010Q1

REPORT INFORMATION
  Report Type: 
  Country: None (occurrence: None)
  Receive Date: 20100202
  Receipt Date: 20091119
  Transmission Date: 20100710
  Serious: Yes (Hospitalization)
  Sender: FDA-Public Use
  Company Number: 215940USA

PATIENT

DRUGS (1)
  1. EPOPROSTENOL SODIUM [Suspect]
     Dosage: 90UG/ML (60NG/KG/MIN), INTRAVENOUS DRIP
     Route: 041
     Dates: start: 20091002, end: 20091005

REACTIONS (3)
  - HEADACHE [None]
  - NAUSEA [None]
  - VOMITING [None]
